FAERS Safety Report 20264524 (Version 2)
Quarter: 2022Q1

REPORT INFORMATION
  Report Type: Spontaneous
  Country: JP (occurrence: JP)
  Receive Date: 20211231
  Receipt Date: 20220207
  Transmission Date: 20220424
  Serious: Yes (Other)
  Sender: FDA-Public Use
  Company Number: JP-ferring-EVA202101960FERRINGPH

PATIENT
  Age: 25 Year
  Sex: Female

DRUGS (3)
  1. DESMOPRESSIN ACETATE [Suspect]
     Active Substance: DESMOPRESSIN ACETATE
     Indication: Diabetes insipidus
     Dosage: 60 UG, 2 TIMES DAILY (EVERY 12 HOUR)
     Route: 065
     Dates: start: 20150306
  2. DESMOPRESSIN ACETATE [Suspect]
     Active Substance: DESMOPRESSIN ACETATE
     Dosage: 60 UG, 3 TIMES DAILY (EVERY 8 HOUR)
     Route: 065
     Dates: start: 20150206, end: 20150306
  3. RYO-KEI-JUTSU-KAN-TO [Concomitant]
     Route: 065

REACTIONS (5)
  - Adrenal insufficiency [Unknown]
  - Laryngeal pain [Unknown]
  - Laryngitis [Unknown]
  - Dizziness [Unknown]
  - Product dose omission in error [Unknown]
